FAERS Safety Report 8287987-4 (Version None)
Quarter: 2012Q2

REPORT INFORMATION
  Report Type: 
  Country: None (occurrence: None)
  Receive Date: 20120416
  Receipt Date: 20120411
  Transmission Date: 20120825
  Serious: Yes (Death)
  Sender: FDA-Public Use
  Company Number: FR-ASTRAZENECA-2012SE22941

PATIENT
  Sex: Male

DRUGS (2)
  1. QUETIAPINE FUMARATE [Suspect]
     Route: 048
  2. LORAZEPAM [Suspect]
     Route: 048

REACTIONS (4)
  - ELECTROCARDIOGRAM QT PROLONGED [None]
  - COMPLETED SUICIDE [None]
  - CARDIAC ARREST [None]
  - OVERDOSE [None]
